FAERS Safety Report 8448596-7 (Version None)
Quarter: 2012Q2

REPORT INFORMATION
  Report Type: 
  Country: None (occurrence: None)
  Receive Date: 20120619
  Receipt Date: 20120613
  Transmission Date: 20120825
  Serious: Yes (Other)
  Sender: FDA-Public Use
  Company Number: AR-ROCHE-1079143

PATIENT
  Sex: Female

DRUGS (1)
  1. LUCENTIS [Suspect]
     Indication: GLAUCOMA
     Dosage: THREE AMPOULES IN TOTAL
     Route: 050

REACTIONS (2)
  - BRONCHITIS [None]
  - HEARING IMPAIRED [None]
